FAERS Safety Report 6726144-7 (Version None)
Quarter: 2010Q2

REPORT INFORMATION
  Report Type: 
  Country: None (occurrence: None)
  Receive Date: 20100514
  Receipt Date: 20100510
  Transmission Date: 20101027
  Serious: Yes (Other)
  Sender: FDA-Public Use
  Company Number: US-PFIZER INC-2010045387

PATIENT
  Sex: Male
  Weight: 31.973 kg

DRUGS (4)
  1. ZOLOFT [Suspect]
     Indication: ANXIETY
     Dosage: 50 MG, 1X/DAY
     Dates: start: 20080101
  2. ZOLOFT [Suspect]
     Indication: DEPRESSION
  3. ABILIFY [Suspect]
     Indication: ANXIETY
     Dosage: 5 MG, 1X/DAY
     Dates: start: 20090101
  4. ABILIFY [Suspect]
     Indication: DEPRESSION

REACTIONS (1)
  - TOOTH LOSS [None]
